FAERS Safety Report 15767127 (Version 4)
Quarter: 2020Q2

REPORT INFORMATION
  Report Type: Spontaneous
  Country: BE (occurrence: BE)
  Receive Date: 20181227
  Receipt Date: 20200511
  Transmission Date: 20200713
  Serious: Yes (Other)
  Sender: FDA-Public Use
  Company Number: BE-PFIZER INC-2018524600

PATIENT
  Age: 13 Year
  Sex: Female

DRUGS (19)
  1. DEXAMETHASONE. [Suspect]
     Active Substance: DEXAMETHASONE
     Indication: B-CELL TYPE ACUTE LEUKAEMIA
     Dosage: 252 MG/M2, CYCLIC
  2. VINCRISTINE [Concomitant]
     Active Substance: VINCRISTINE
     Indication: B-CELL TYPE ACUTE LEUKAEMIA
     Dosage: 10.16 MG/M2, CYCLIC
  3. CYCLOPHOSPHAMIDE. [Concomitant]
     Active Substance: CYCLOPHOSPHAMIDE
     Indication: B-CELL TYPE ACUTE LEUKAEMIA
     Dosage: UNK UNK, CYCLIC (2G/M2)
  4. SOLU-MEDROL [Suspect]
     Active Substance: METHYLPREDNISOLONE SODIUM SUCCINATE
     Dosage: 30 MG, CYCLIC (16 IT CHEMOTHERAPY, INJECTION)
     Route: 037
  5. METHOTREXATE SODIUM. [Concomitant]
     Active Substance: METHOTREXATE SODIUM
     Indication: B-CELL TYPE ACUTE LEUKAEMIA
     Dosage: 12 MG, CYCLIC (16 IT CHEMOTHERAPY) INJECTION
     Route: 037
  6. CYTARABINE. [Concomitant]
     Active Substance: CYTARABINE
     Indication: B-CELL TYPE ACUTE LEUKAEMIA
     Dosage: UNK UNK, CYCLIC (16 IT CHEMOTHERAPY, 2G/M2, INJECTION)
     Route: 037
  7. CYTARABINE. [Concomitant]
     Active Substance: CYTARABINE
     Dosage: 15 MG, CYCLIC (INJECTION)
     Route: 037
  8. DAUNORUBICINE [Concomitant]
     Active Substance: DAUNORUBICIN
     Indication: B-CELL TYPE ACUTE LEUKAEMIA
     Dosage: 120 MG/M2, CYCLIC
  9. METHOTREXATE SODIUM. [Concomitant]
     Active Substance: METHOTREXATE SODIUM
     Dosage: UNK, CYCLIC (20G/M2)
  10. 6-MERCAPTOPURINE MONOHYDRATE [Concomitant]
     Active Substance: MERCAPTOPURINE
     Indication: B-CELL TYPE ACUTE LEUKAEMIA
     Dosage: 2773 MG/M2, CYCLIC
  11. PREDNISOLONE. [Suspect]
     Active Substance: PREDNISOLONE
     Indication: B-CELL TYPE ACUTE LEUKAEMIA
     Dosage: 1620 MG/M2, CYCLIC
  12. METHOTREXATE SODIUM. [Concomitant]
     Active Substance: METHOTREXATE SODIUM
     Dosage: UNK UNK, CYCLIC  (HIGH DOSE, 5 G/SQM/COURSE 4 COURSES)
     Route: 042
  13. THIOGUANINE [Concomitant]
     Active Substance: THIOGUANINE
     Indication: B-CELL TYPE ACUTE LEUKAEMIA
     Dosage: UNK UNK, CYCLIC
  14. MITOXANTRONE [Concomitant]
     Active Substance: MITOXANTRONE HYDROCHLORIDE
     Indication: B-CELL TYPE ACUTE LEUKAEMIA
     Dosage: 8 MG/M2, CYCLIC
  15. ETOPOSIDE. [Concomitant]
     Active Substance: ETOPOSIDE
     Indication: B-CELL TYPE ACUTE LEUKAEMIA
     Dosage: 458 MG/M2, CYCLIC
  16. SOLU-MEDROL [Suspect]
     Active Substance: METHYLPREDNISOLONE SODIUM SUCCINATE
     Dosage: UNK, CYCLIC (HD METHYLPREDNISONE 1 G/M2/D FOR 3 CONSECUTIVE DAYS)
  17. ERWINIASE [Concomitant]
     Active Substance: ASPARAGINASE
     Indication: B-CELL TYPE ACUTE LEUKAEMIA
     Dosage: UNK UNK, CYCLIC (U)
  18. DOXORUBICIN [Concomitant]
     Active Substance: DOXORUBICIN
     Indication: B-CELL TYPE ACUTE LEUKAEMIA
     Dosage: 50 MG/M2, CYCLIC
  19. PEG/L-ASPARAGINASE [Concomitant]
     Active Substance: PEGASPARGASE
     Indication: B-CELL TYPE ACUTE LEUKAEMIA
     Dosage: UNK UNK, CYCLIC (9898 U/M2)

REACTIONS (4)
  - Product use issue [Unknown]
  - Osteonecrosis [Unknown]
  - Off label use [Unknown]
  - Type 1 diabetes mellitus [Unknown]
